FAERS Safety Report 4876847-4 (Version None)
Quarter: 2006Q1

REPORT INFORMATION
  Report Type: 
  Country: None (occurrence: None)
  Receive Date: 20060110
  Receipt Date: 20051230
  Transmission Date: 20060701
  Serious: Yes (Hospitalization)
  Sender: FDA-Public Use
  Company Number: FR-BRISTOL-MYERS SQUIBB COMPANY-13234166

PATIENT
  Age: 65 Year
  Sex: Male
  Weight: 69 kg

DRUGS (7)
  1. CISPLATIN [Suspect]
     Indication: SMALL CELL LUNG CANCER STAGE UNSPECIFIED
     Dosage: 1ST DOSE: 19SEP2005
     Route: 042
     Dates: start: 20051124, end: 20051124
  2. ETOPOSIDE [Suspect]
     Indication: SMALL CELL LUNG CANCER STAGE UNSPECIFIED
     Dosage: 1ST DOSE: 19SEP2005
     Route: 042
     Dates: start: 20051126, end: 20051126
  3. SECTRAL [Concomitant]
     Route: 048
  4. ZOLPIDEM TARTRATE [Concomitant]
     Route: 048
     Dates: start: 20050915
  5. TARDYFERON [Concomitant]
     Route: 048
     Dates: start: 20051102
  6. LEXOMIL [Concomitant]
     Route: 048
  7. NEORECORMON [Concomitant]
     Route: 058
     Dates: start: 20051102

REACTIONS (4)
  - CHEST PAIN [None]
  - DYSPNOEA [None]
  - HYPOTHERMIA [None]
  - NEUTROPENIA [None]
